FAERS Safety Report 19944720 (Version 1)
Quarter: 2021Q4

REPORT INFORMATION
  Report Type: Spontaneous
  Country: MW (occurrence: MW)
  Receive Date: 20211012
  Receipt Date: 20211012
  Transmission Date: 20220303
  Serious: Yes (Death, Other)
  Sender: FDA-Public Use
  Company Number: MW-NOVARTISPH-NVSC2021MW231399

PATIENT
  Sex: Male

DRUGS (2)
  1. TASIGNA [Suspect]
     Active Substance: NILOTINIB
     Indication: Chronic myeloid leukaemia
     Dosage: 400 MG, BID
     Route: 065
  2. IMATINIB. [Suspect]
     Active Substance: IMATINIB MESYLATE
     Indication: Chronic myeloid leukaemia
     Dosage: UNK
     Route: 065

REACTIONS (11)
  - Infection [Fatal]
  - Large intestinal obstruction [Unknown]
  - Tuberculosis [Unknown]
  - Lower respiratory tract infection [Unknown]
  - Chronic myeloid leukaemia [Unknown]
  - Malignant neoplasm progression [Unknown]
  - Cytogenetic analysis abnormal [Unknown]
  - Full blood count abnormal [Unknown]
  - COVID-19 [Unknown]
  - Malaise [Unknown]
  - Asthenia [Unknown]
